FAERS Safety Report 8603694-X (Version None)
Quarter: 2012Q3

REPORT INFORMATION
  Report Type: 
  Country: None (occurrence: None)
  Receive Date: 20120817
  Receipt Date: 20120625
  Transmission Date: 20120928
  Serious: Yes (Hospitalization)
  Sender: FDA-Public Use
  Company Number: DE-ASTRAZENECA-2012SE45376

PATIENT
  Age: 12 Month
  Sex: Male
  Weight: 7.3 kg

DRUGS (5)
  1. AMPICILLIN AND SULBACTAM [Concomitant]
     Route: 042
     Dates: start: 20120514, end: 20120524
  2. IPRATROPIUM BROMIDE [Concomitant]
     Route: 055
     Dates: start: 20120514, end: 20120524
  3. ALBUTEROL SULATE [Concomitant]
     Route: 055
     Dates: start: 20120514, end: 20120524
  4. SYNAGIS [Suspect]
     Indication: ANTIVIRAL PROPHYLAXIS
     Route: 030
     Dates: start: 20111212, end: 20120430
  5. SODIUM CHLORIDE [Concomitant]
     Route: 055
     Dates: start: 20120514, end: 20120524

REACTIONS (4)
  - VIRAL INFECTION [None]
  - CONJUNCTIVITIS [None]
  - BRONCHITIS [None]
  - GASTROENTERITIS ROTAVIRUS [None]
